FAERS Safety Report 16581991 (Version 1)
Quarter: 2019Q3

REPORT INFORMATION
  Report Type: Spontaneous
  Country: US (occurrence: US)
  Receive Date: 20190717
  Receipt Date: 20190717
  Transmission Date: 20191004
  Serious: No
  Sender: FDA-Public Use
  Company Number: US-ELI_LILLY_AND_COMPANY-US201907006681

PATIENT
  Sex: Female

DRUGS (2)
  1. HUMALOG [Suspect]
     Active Substance: INSULIN LISPRO
     Dosage: 10 U, PRN (6-10 UNITS TWICE DAILY, SLIDING SCALE)
     Route: 058
  2. HUMALOG [Suspect]
     Active Substance: INSULIN LISPRO
     Indication: TYPE 2 DIABETES MELLITUS
     Dosage: 10 U, PRN (6-10 UNITS TWICE DAILY, SLIDING SCALE)
     Route: 058
     Dates: start: 2017

REACTIONS (7)
  - Blood glucose increased [Unknown]
  - Nasopharyngitis [Recovered/Resolved]
  - Stress [Unknown]
  - Product storage error [Unknown]
  - Cough [Recovered/Resolved]
  - Glycosylated haemoglobin increased [Unknown]
  - Pain in extremity [Not Recovered/Not Resolved]

NARRATIVE: CASE EVENT DATE: 201904
